FAERS Safety Report 5879647-1 (Version None)
Quarter: 2008Q3

REPORT INFORMATION
  Report Type: 
  Country: None (occurrence: None)
  Receive Date: 20080912
  Receipt Date: 20080904
  Transmission Date: 20090109
  Serious: Yes (Life-Threatening, Hospitalization, Other)
  Sender: FDA-Public Use
  Company Number: US-ABBOTT-08P-163-0474306-00

PATIENT
  Sex: Female
  Weight: 54.48 kg

DRUGS (9)
  1. HUMIRA [Suspect]
     Indication: RHEUMATOID ARTHRITIS
     Route: 058
     Dates: start: 20060101, end: 20080125
  2. HUMIRA [Suspect]
     Route: 058
     Dates: start: 20080201
  3. METHOTREXATE [Suspect]
     Indication: RHEUMATOID ARTHRITIS
     Route: 048
     Dates: end: 20080125
  4. METHOTREXATE [Suspect]
     Dates: start: 20080401
  5. AMLODIPINE BESYLATE [Suspect]
     Indication: DRUG USE FOR UNKNOWN INDICATION
     Route: 048
     Dates: end: 20080828
  6. PREDNISONE [Suspect]
     Indication: DRUG USE FOR UNKNOWN INDICATION
     Route: 048
  7. PREDNISONE [Suspect]
  8. HYDROXYCHLOROQUINE [Suspect]
     Indication: DRUG USE FOR UNKNOWN INDICATION
  9. MORPHINE [Concomitant]
     Indication: CANCER PAIN

REACTIONS (14)
  - ABDOMINAL PAIN [None]
  - ANGIOEDEMA [None]
  - ANXIETY [None]
  - CARDIAC ARREST [None]
  - IMPAIRED HEALING [None]
  - LYMPHADENOPATHY [None]
  - MOUTH ULCERATION [None]
  - PNEUMONIA [None]
  - RESPIRATORY ARREST [None]
  - STAPHYLOCOCCAL INFECTION [None]
  - VAGINAL CANCER [None]
  - VAGINAL ULCERATION [None]
  - VULVAL CANCER [None]
  - WHITE BLOOD CELL COUNT INCREASED [None]
